FAERS Safety Report 26073785 (Version 2)
Quarter: 2025Q4

REPORT INFORMATION
  Report Type: Spontaneous
  Country: US (occurrence: US)
  Receive Date: 20251121
  Receipt Date: 20251224
  Transmission Date: 20260117
  Serious: No
  Sender: JOHNSON AND JOHNSON
  Company Number: US-VIIV HEALTHCARE-US2025144496

PATIENT
  Age: 44 Year
  Sex: Female
  Weight: 90.249 kg

DRUGS (2)
  1. RILPIVIRINE [Suspect]
     Active Substance: RILPIVIRINE
     Indication: HIV infection
     Dosage: UNK, Q2M 600/900 MG
     Route: 030
     Dates: start: 20230424
  2. CABOTEGRAVIR [Suspect]
     Active Substance: CABOTEGRAVIR
     Indication: HIV infection
     Dosage: UNK, Q2M 600/900 MG
     Route: 030
     Dates: start: 20230424

REACTIONS (1)
  - Injection site induration [Not Recovered/Not Resolved]
